FAERS Safety Report 10547566 (Version 1)
Quarter: 2014Q4

REPORT INFORMATION
  Report Type: Spontaneous
  Country: GB (occurrence: None)
  Receive Date: 20141023
  Receipt Date: 20141023
  Transmission Date: 20150529
  Serious: Yes (Hospitalization)
  Sender: FDA-Public Use
  Company Number: 2014000058A

PATIENT
  Age: 79 Year
  Sex: Male
  Weight: 80.27 kg

DRUGS (10)
  1. K-TAB (POTASSIUM CHLORIDE) [Concomitant]
  2. MS CONTIN [Suspect]
     Active Substance: MORPHINE SULFATE
     Indication: PAIN IN EXTREMITY
     Dates: start: 20140718
  3. FUROSEMIDE. [Concomitant]
     Active Substance: FUROSEMIDE
  4. METOPROLOL TARTRATE. [Concomitant]
     Active Substance: METOPROLOL TARTRATE
  5. CEFUROXIME. [Concomitant]
     Active Substance: CEFUROXIME
  6. TAMSULOSIN [Concomitant]
     Active Substance: TAMSULOSIN
  7. VENLAFFAXINE HCL [Concomitant]
  8. PROVENGE (SIPULEUCEL-T) [Concomitant]
  9. ADVIL [Concomitant]
     Active Substance: IBUPROFEN
  10. OXYCODONE [Suspect]
     Active Substance: OXYCODONE
     Indication: PAIN IN EXTREMITY
     Dosage: Q4H, PRN
     Dates: start: 20140722

REACTIONS (13)
  - White blood cells urine [None]
  - Urinary tract infection [None]
  - Bladder neck obstruction [None]
  - Acute kidney injury [None]
  - Dehydration [None]
  - Mental status changes [None]
  - Hyponatraemia [None]
  - Anaemia [None]
  - Confusional state [None]
  - Therapeutic response decreased [None]
  - Pyrexia [None]
  - Pneumonia [None]
  - Atrial tachycardia [None]

NARRATIVE: CASE EVENT DATE: 20140728
